FAERS Safety Report 4751945-4 (Version None)
Quarter: 2005Q3

REPORT INFORMATION
  Report Type: 
  Country: None (occurrence: None)
  Receive Date: 20050822
  Receipt Date: 20050628
  Transmission Date: 20060218
  Serious: No
  Sender: FDA-Public Use
  Company Number: PHEH2005US07245

PATIENT
  Age: 60 Year
  Sex: Female

DRUGS (2)
  1. ZELNORM [Suspect]
     Indication: IRRITABLE BOWEL SYNDROME
     Dosage: 6 MG BID, ORAL
     Route: 048
     Dates: start: 20050101
  2. LORTAB [Suspect]
     Indication: ARTHRITIS
     Dosage: 30 MG UNK UNK
     Route: 065
     Dates: start: 19950101

REACTIONS (2)
  - DRUG INTERACTION [None]
  - DRUG SCREEN NEGATIVE [None]
